FAERS Safety Report 12662403 (Version 1)
Quarter: 2016Q3

REPORT INFORMATION
  Report Type: Spontaneous
  Country: AU (occurrence: AU)
  Receive Date: 20160817
  Receipt Date: 20160817
  Transmission Date: 20161109
  Serious: Yes (Life-Threatening)
  Sender: FDA-Public Use
  Company Number: AU-009507513-1608AUS006068

PATIENT
  Sex: Female

DRUGS (10)
  1. MIDAZOLAM [Suspect]
     Active Substance: MIDAZOLAM\MIDAZOLAM HYDROCHLORIDE
     Dosage: 2 MG, UNK
     Dates: start: 20160324
  2. IODINE. [Suspect]
     Active Substance: IODINE
     Dosage: UNK
     Dates: start: 20160324
  3. ROCURONIUM BROMIDE. [Suspect]
     Active Substance: ROCURONIUM BROMIDE
     Dosage: UNK
     Dates: start: 20160324
  4. DEXAMETHASONE. [Suspect]
     Active Substance: DEXAMETHASONE
     Dosage: 4 MG, UNK
     Dates: start: 20160324
  5. ONDANSETRON [Suspect]
     Active Substance: ONDANSETRON
     Dosage: UNK
     Dates: start: 20160324
  6. PROPOFOL. [Suspect]
     Active Substance: PROPOFOL
     Dosage: UNK
     Dates: start: 20160324
  7. FENTANYL. [Suspect]
     Active Substance: FENTANYL
     Dosage: 100 MG, UNK
     Dates: start: 20160324
  8. CEPHALOTHIN SODIUM [Suspect]
     Active Substance: CEPHALOTHIN SODIUM
     Dosage: UNK
     Dates: start: 20160324
  9. EPHEDRINE. [Suspect]
     Active Substance: EPHEDRINE
     Dosage: UNK
     Dates: start: 20160324
  10. PARECOXIB [Suspect]
     Active Substance: PARECOXIB
     Dosage: 40 MG, UNK
     Dates: start: 20160324

REACTIONS (3)
  - Respiratory disorder [Recovered/Resolved]
  - Pallor [Recovered/Resolved]
  - Hypotension [Recovered/Resolved]

NARRATIVE: CASE EVENT DATE: 2016
